FAERS Safety Report 4917162-X (Version None)
Quarter: 2006Q1

REPORT INFORMATION
  Report Type: 
  Country: None (occurrence: None)
  Receive Date: 20060216
  Receipt Date: 20060216
  Transmission Date: 20060701
  Serious: No
  Sender: FDA-Public Use
  Company Number: None

PATIENT
  Age: 81 Year
  Sex: Male

DRUGS (1)
  1. HYDRALAZINE 50 MG PLIVA [Suspect]
     Indication: HYPERTENSION
     Dosage: 50 MG PO QID
     Route: 048
     Dates: start: 20041223, end: 20051114

REACTIONS (1)
  - SYSTEMIC LUPUS ERYTHEMATOSUS [None]
